FAERS Safety Report 16896481 (Version 1)
Quarter: 2019Q4

REPORT INFORMATION
  Report Type: Report from Study
  Country: US (occurrence: US)
  Receive Date: 20191008
  Receipt Date: 20191008
  Transmission Date: 20200122
  Serious: No
  Sender: FDA-Public Use
  Company Number: US-EMD SERONO-9107145

PATIENT
  Sex: Male

DRUGS (2)
  1. MAVENCLAD [Suspect]
     Active Substance: CLADRIBINE
     Dosage: YEAR 1 MONTH 2 THERAPY: TWO TABLETS ONCE DAILY ON DAYS 1 AND 2 AND ONE TABLET ONCE DAILY ON DAYS 3 T
     Route: 048
     Dates: start: 20190718, end: 20190722
  2. MAVENCLAD [Suspect]
     Active Substance: CLADRIBINE
     Indication: MULTIPLE SCLEROSIS
     Dosage: YEAR 1 MONTH 1 THERAPY: TWO TABLETS ONCE DAILY ON DAYS 1 TO 3 AND ONE TABLET ONCE DAILY ON DAYS 4 AN
     Route: 048
     Dates: start: 20190620, end: 20190624

REACTIONS (1)
  - Fatigue [Unknown]
